FAERS Safety Report 7350495-9 (Version None)
Quarter: 2011Q1

REPORT INFORMATION
  Report Type: 
  Country: None (occurrence: None)
  Receive Date: 20110314
  Receipt Date: 20110302
  Transmission Date: 20110831
  Serious: Yes (Other)
  Sender: FDA-Public Use
  Company Number: DE-JNJFOC-20110303033

PATIENT
  Age: 72 Year
  Sex: Male

DRUGS (8)
  1. SIMVASTATIN [Concomitant]
     Route: 065
  2. BISOPROLOL FUMARATE [Concomitant]
     Route: 065
  3. ASPIRIN [Concomitant]
     Route: 065
  4. ISOSORBIDE DINITRATE [Concomitant]
     Route: 065
  5. MOLSIDOMIN [Concomitant]
     Route: 065
  6. ARESTIN [Suspect]
     Indication: ROSACEA
     Route: 065
  7. ATACAND [Concomitant]
     Route: 065
  8. TORASEMID [Concomitant]
     Route: 065

REACTIONS (3)
  - SELF-MEDICATION [None]
  - SKIN HYPERPIGMENTATION [None]
  - OFF LABEL USE [None]
